FAERS Safety Report 6464936-2 (Version None)
Quarter: 2009Q4

REPORT INFORMATION
  Report Type: 
  Country: None (occurrence: None)
  Receive Date: 20091201
  Receipt Date: 20091126
  Transmission Date: 20100525
  Serious: Yes (Hospitalization)
  Sender: FDA-Public Use
  Company Number: SE-ABBOTT-09P-150-0606097-00

PATIENT
  Sex: Female

DRUGS (8)
  1. HUMIRA [Suspect]
     Indication: PSORIATIC ARTHROPATHY
     Dates: start: 20081007
  2. METHOTREXATE [Concomitant]
     Indication: PSORIATIC ARTHROPATHY
  3. OMEPRASOL [Concomitant]
     Indication: DRUG USE FOR UNKNOWN INDICATION
  4. CALCICHEW D3 [Concomitant]
     Indication: DRUG USE FOR UNKNOWN INDICATION
  5. PREDNISOLONE [Concomitant]
     Indication: DRUG USE FOR UNKNOWN INDICATION
     Dosage: 7.5MG DAILY
  6. OXYCONTIN [Concomitant]
     Indication: DRUG USE FOR UNKNOWN INDICATION
  7. ACETAMINOPHEN [Concomitant]
     Indication: DRUG USE FOR UNKNOWN INDICATION
  8. ORUDIS [Concomitant]
     Indication: DRUG USE FOR UNKNOWN INDICATION

REACTIONS (2)
  - ABDOMINAL PAIN [None]
  - PANCREATITIS [None]
